FAERS Safety Report 20732048 (Version 1)
Quarter: 2022Q2

REPORT INFORMATION
  Report Type: Spontaneous
  Country: CN (occurrence: CN)
  Receive Date: 20220420
  Receipt Date: 20220420
  Transmission Date: 20220721
  Serious: Yes (Other)
  Sender: FDA-Public Use
  Company Number: CN-SA-SAC20220419000883

PATIENT
  Age: 47 Year
  Sex: Male
  Weight: 55 kg

DRUGS (9)
  1. OXALIPLATIN [Suspect]
     Active Substance: OXALIPLATIN
     Indication: Hepatic cancer
     Dosage: 200 MG, 1X
     Route: 041
     Dates: start: 20220313, end: 20220313
  2. LENVATINIB MESYLATE [Suspect]
     Active Substance: LENVATINIB MESYLATE
     Indication: Hepatic cancer
     Dosage: 8 MG, QD
     Route: 048
     Dates: start: 20220313, end: 20220409
  3. SINTILIMAB [Suspect]
     Active Substance: SINTILIMAB
     Indication: Hepatic cancer
     Dosage: 200 MG, 1X
     Route: 041
     Dates: start: 20220313, end: 20220313
  4. GEMCITABINE [Suspect]
     Active Substance: GEMCITABINE
     Indication: Hepatic cancer
     Dosage: 1400 MG, 1X
     Route: 041
     Dates: start: 20220313, end: 20220313
  5. LOSEC [Concomitant]
     Active Substance: OMEPRAZOLE
     Indication: Gastric pH decreased
  6. LORATADINE [Concomitant]
     Active Substance: LORATADINE
     Indication: Rash pruritic
     Route: 048
     Dates: start: 20220222
  7. OPRELVEKIN [Concomitant]
     Active Substance: OPRELVEKIN
     Indication: Platelet count decreased
  8. XIN FU KANG JIAO NANG [Concomitant]
     Indication: CSF white blood cell count decreased
     Route: 048
     Dates: start: 20220223
  9. THROMBOPOIETIN [Concomitant]
     Active Substance: THROMBOPOIETIN
     Indication: Platelet count decreased
     Route: 048
     Dates: start: 20220306

REACTIONS (4)
  - Rash pruritic [Unknown]
  - Asthenia [Unknown]
  - Myelosuppression [Unknown]
  - Pyrexia [Unknown]

NARRATIVE: CASE EVENT DATE: 20220326
